FAERS Safety Report 8120125-7 (Version None)
Quarter: 2012Q1

REPORT INFORMATION
  Report Type: 
  Country: None (occurrence: None)
  Receive Date: 20120207
  Receipt Date: 20120130
  Transmission Date: 20120608
  Serious: Yes (Death)
  Sender: FDA-Public Use
  Company Number: JP-MEDIMMUNE-MEDI-0014741

PATIENT

DRUGS (1)
  1. SYNAGIS [Suspect]
     Route: 030
     Dates: start: 20101007, end: 20101202

REACTIONS (2)
  - PYREXIA [None]
  - DEATH [None]
